FAERS Safety Report 13652556 (Version 1)
Quarter: 2017Q2

REPORT INFORMATION
  Report Type: Spontaneous
  Country: US (occurrence: US)
  Receive Date: 20170614
  Receipt Date: 20170614
  Transmission Date: 20170830
  Serious: No
  Sender: FDA-Public Use
  Company Number: US-ROCHE-1295922

PATIENT
  Sex: Female

DRUGS (3)
  1. MEGESTROL [Concomitant]
     Active Substance: MEGESTROL
  2. XELODA [Suspect]
     Active Substance: CAPECITABINE
     Indication: PRODUCT USED FOR UNKNOWN INDICATION
     Dosage: 14 DAYS EVERY 3 WEEKS
     Route: 048
     Dates: start: 20130730
  3. PANTOPRAZOLE [Concomitant]
     Active Substance: PANTOPRAZOLE

REACTIONS (4)
  - Peripheral swelling [Unknown]
  - Visual impairment [Unknown]
  - Fatigue [Unknown]
  - Eye irritation [Unknown]
